FAERS Safety Report 5868986-6 (Version None)
Quarter: 2008Q3

REPORT INFORMATION
  Report Type: 
  Country: None (occurrence: None)
  Receive Date: 20080903
  Receipt Date: 20080819
  Transmission Date: 20090109
  Serious: Yes (Hospitalization)
  Sender: FDA-Public Use
  Company Number: AU-GENENTECH-267103

PATIENT
  Age: 50 Year
  Sex: Male

DRUGS (2)
  1. MABTHERA [Suspect]
     Indication: VASCULITIS
     Dosage: 700 MG, 1/WEEK
  2. RIBAVIRIN [Concomitant]
     Indication: DRUG USE FOR UNKNOWN INDICATION

REACTIONS (1)
  - DEEP VEIN THROMBOSIS [None]
